FAERS Safety Report 9347193 (Version 2)
Quarter: 2013Q3

REPORT INFORMATION
  Report Type: Spontaneous
  Country: US (occurrence: US)
  Receive Date: 20130613
  Receipt Date: 20130708
  Transmission Date: 20140515
  Serious: Yes (Other)
  Sender: FDA-Public Use
  Company Number: US-PFIZER INC-2013177072

PATIENT
  Age: 53 Year
  Sex: Male
  Weight: 63.49 kg

DRUGS (1)
  1. LYRICA [Suspect]
     Indication: NEURALGIA
     Dosage: 1000 MG, 1X/DAY (200 MG X 5 PER DAY)

REACTIONS (7)
  - Overdose [Unknown]
  - Cerebrovascular accident [Unknown]
  - Accident [Unknown]
  - Foot fracture [Unknown]
  - Type 2 diabetes mellitus [Unknown]
  - Memory impairment [Unknown]
  - Emotional distress [Unknown]
